FAERS Safety Report 20292094 (Version 2)
Quarter: 2022Q1

REPORT INFORMATION
  Report Type: Report from Study
  Country: US (occurrence: US)
  Receive Date: 20220104
  Receipt Date: 20220301
  Transmission Date: 20220423
  Serious: No
  Sender: FDA-Public Use
  Company Number: US-KYOWAKIRIN-2021BKK022048

PATIENT

DRUGS (4)
  1. CRYSVITA [Suspect]
     Active Substance: BUROSUMAB-TWZA
     Indication: Hereditary hypophosphataemic rickets
     Dosage: 60 MG, EVERY 14 DAYS
     Route: 058
     Dates: start: 20191105
  2. VITAMIN D NOS [Suspect]
     Active Substance: VITAMIN D NOS
     Indication: Vitamin D decreased
     Dosage: 5000 IU DAILY
     Route: 065
     Dates: start: 20211220
  3. ETHINYL ESTRADIOL\ETHYNODIOL DIACETATE [Concomitant]
     Active Substance: ETHINYL ESTRADIOL\ETHYNODIOL DIACETATE
     Indication: Polycystic ovaries
     Dosage: UNK
     Route: 065
     Dates: start: 20211220
  4. ETHINYL ESTRADIOL\ETHYNODIOL DIACETATE [Concomitant]
     Active Substance: ETHINYL ESTRADIOL\ETHYNODIOL DIACETATE
     Indication: Ovarian enlargement

REACTIONS (7)
  - Ovarian enlargement [Not Recovered/Not Resolved]
  - Blood phosphorus decreased [Not Recovered/Not Resolved]
  - High density lipoprotein decreased [Not Recovered/Not Resolved]
  - Blood parathyroid hormone increased [Not Recovered/Not Resolved]
  - Blood insulin increased [Not Recovered/Not Resolved]
  - Vitamin D decreased [Not Recovered/Not Resolved]
  - Contraindicated product administered [Unknown]

NARRATIVE: CASE EVENT DATE: 20211211
